FAERS Safety Report 25689140 (Version 1)
Quarter: 2025Q3

REPORT INFORMATION
  Report Type: Spontaneous
  Country: EU (occurrence: EU)
  Receive Date: 20250818
  Receipt Date: 20250818
  Transmission Date: 20251020
  Serious: Yes (Other)
  Sender: BRISTOL-MYERS SQUIBB COMPANY
  Company Number: None

PATIENT
  Age: 60 Year
  Sex: Female

DRUGS (3)
  1. TRIAMCINOLONE ACETONIDE [Suspect]
     Active Substance: TRIAMCINOLONE ACETONIDE
     Indication: Guttate psoriasis
     Route: 061
     Dates: start: 20250707
  2. IVERMECTIN [Suspect]
     Active Substance: IVERMECTIN
     Indication: Scabies
     Route: 048
     Dates: start: 20250715, end: 20250715
  3. PREDNISONE [Suspect]
     Active Substance: PREDNISONE
     Indication: Pruritus
     Route: 048
     Dates: start: 20250708, end: 20250713

REACTIONS (1)
  - Oedema peripheral [Not Recovered/Not Resolved]

NARRATIVE: CASE EVENT DATE: 20250717
